FAERS Safety Report 17780980 (Version 15)
Quarter: 2020Q3

REPORT INFORMATION
  Report Type: Report from Study
  Country: DE (occurrence: DE)
  Receive Date: 20200513
  Receipt Date: 20200922
  Transmission Date: 20201102
  Serious: Yes (Hospitalization, Other)
  Sender: FDA-Public Use
  Company Number: DE-BRISTOL-MYERS SQUIBB COMPANY-BMS-2020-029655

PATIENT
  Age: 80 Year
  Sex: Male
  Weight: 100 kg

DRUGS (16)
  1. METOPROLOL. [Concomitant]
     Active Substance: METOPROLOL
     Indication: CONCOMITANT DISEASE AGGRAVATED
     Dosage: 190 MILLIGRAM
     Route: 065
     Dates: start: 19930101
  2. ELIQUIS [Concomitant]
     Active Substance: APIXABAN
     Indication: CARDIOVASCULAR INSUFFICIENCY
     Dosage: 10 MILLIGRAM
     Route: 065
     Dates: start: 20190801
  3. INSUMAN BASAL [Concomitant]
     Active Substance: INSULIN HUMAN
     Indication: METABOLIC DISORDER
     Dosage: 10 INTERNATIONAL UNIT
     Route: 065
     Dates: start: 20200424
  4. NIVOLUMAB [Suspect]
     Active Substance: NIVOLUMAB
     Dosage: 480 MILLIGRAM, Q4WK (MONOHERAY)
     Route: 042
     Dates: start: 20200214
  5. IPILIMUMAB [Suspect]
     Active Substance: IPILIMUMAB
     Indication: RENAL CELL CARCINOMA
     Dosage: 1 MILLIGRAM/KILOGRAM, Q3WK
     Route: 042
     Dates: start: 20191122, end: 20200124
  6. FINASTERID [Concomitant]
     Active Substance: FINASTERIDE
     Indication: CONCOMITANT DISEASE AGGRAVATED
     Dosage: 5 MILLIGRAM
     Route: 065
     Dates: start: 20120601
  7. INSUMAN BASAL [Concomitant]
     Active Substance: INSULIN HUMAN
     Dosage: 12 INTERNATIONAL UNIT
     Route: 065
  8. NIVOLUMAB [Suspect]
     Active Substance: NIVOLUMAB
     Indication: RENAL CELL CARCINOMA
     Dosage: 3 MG/KG, Q3WK (COMBINATION THERAPY) 22 DAYS
     Route: 042
     Dates: start: 20191122, end: 20200124
  9. TAMSULOSIN [Concomitant]
     Active Substance: TAMSULOSIN
     Indication: CONCOMITANT DISEASE AGGRAVATED
     Dosage: 0.4 MILLIGRAM
     Route: 065
     Dates: start: 20120601
  10. LEVOTHYROXIN [Concomitant]
     Active Substance: LEVOTHYROXINE
     Indication: PRODUCT USED FOR UNKNOWN INDICATION
     Dosage: 75 MICROGRAM
     Route: 065
     Dates: start: 20200314, end: 20200323
  11. JANUVIA [Concomitant]
     Active Substance: SITAGLIPTIN PHOSPHATE
     Indication: METABOLIC DISORDER
     Dosage: 100 MILLIGRAM
     Route: 065
     Dates: start: 19990101
  12. ELIQUIS [Concomitant]
     Active Substance: APIXABAN
     Indication: CEREBROVASCULAR DISORDER
  13. SIMVASTATIN. [Concomitant]
     Active Substance: SIMVASTATIN
     Indication: CONCOMITANT DISEASE AGGRAVATED
     Dosage: 10 MILLIGRAM
     Route: 065
     Dates: start: 20000101
  14. DOXAZOSIN [Concomitant]
     Active Substance: DOXAZOSIN MESYLATE
     Indication: CONCOMITANT DISEASE AGGRAVATED
     Dosage: 4 MILLIGRAM, PRIOR TO START OF NIVOLUMAB TREATMENT
     Route: 065
  15. TORASEMID [Concomitant]
     Active Substance: TORSEMIDE
     Indication: CONCOMITANT DISEASE AGGRAVATED
     Dosage: 10 MILLIGRAM
     Route: 065
     Dates: start: 19930101
  16. ACTRAPID [Concomitant]
     Active Substance: INSULIN HUMAN
     Indication: METABOLIC DISORDER
     Dosage: 100 INTERNATIONAL UNIT (EACH AFTER MEAL)
     Route: 065

REACTIONS (8)
  - Confusional state [Recovered/Resolved]
  - Thyroiditis [Unknown]
  - Back pain [Unknown]
  - Hypothyroidism [Recovered/Resolved]
  - Fall [Recovered/Resolved]
  - Vasoconstriction [Recovered/Resolved]
  - Type 2 diabetes mellitus [Recovered/Resolved]
  - Coronary artery stenosis [Recovered/Resolved]

NARRATIVE: CASE EVENT DATE: 20200313
